FAERS Safety Report 8885924 (Version 3)
Quarter: 2012Q4

REPORT INFORMATION
  Report Type: Report from Study
  Country: RU (occurrence: RU)
  Receive Date: 20121105
  Receipt Date: 20121127
  Transmission Date: 20130627
  Serious: Yes (Hospitalization)
  Sender: FDA-Public Use
  Company Number: PHHO2012RU015852

PATIENT
  Age: 7 Year
  Sex: Female
  Weight: 23 kg

DRUGS (4)
  1. ACZ885 [Suspect]
     Indication: JUVENILE ARTHRITIS
     Dosage: 94.4 UNK, UNK
     Route: 058
  2. CEFTRIAXONE [Suspect]
  3. BISOPROLOL [Suspect]
  4. METHOTREXATE [Suspect]

REACTIONS (4)
  - Bronchopneumonia [Recovered/Resolved]
  - Dermatitis allergic [Recovered/Resolved]
  - Aspartate aminotransferase increased [Recovered/Resolved]
  - Alanine aminotransferase increased [Recovered/Resolved]
